FAERS Safety Report 21922012 (Version 8)
Quarter: 2024Q2

REPORT INFORMATION
  Report Type: Report from Study
  Country: US (occurrence: US)
  Receive Date: 20230127
  Receipt Date: 20240610
  Transmission Date: 20240716
  Serious: Yes (Hospitalization)
  Sender: FDA-Public Use
  Company Number: US-002147023-NVSC2023US015359

PATIENT
  Sex: Female

DRUGS (3)
  1. COSENTYX [Suspect]
     Active Substance: SECUKINUMAB
     Indication: Product used for unknown indication
     Dosage: UNK, QMO
     Route: 058
  2. COSENTYX [Suspect]
     Active Substance: SECUKINUMAB
     Dosage: UNK (LAST DOSE WAS ON 1 FEB (UNSPECIFIED YEAR))
     Route: 065
  3. COSENTYX [Suspect]
     Active Substance: SECUKINUMAB
     Dosage: UNK (LAST DOSE WAS ON FEB 28 (UNSPECIFIED YEAR))
     Route: 065

REACTIONS (7)
  - Vomiting [Unknown]
  - Hiatus hernia [Unknown]
  - Weight decreased [Unknown]
  - Illness [Unknown]
  - General symptom [Unknown]
  - Therapeutic response unexpected [Unknown]
  - Product supply issue [Unknown]
